FAERS Safety Report 7098291-4 (Version None)
Quarter: 2010Q4

REPORT INFORMATION
  Report Type: 
  Country: None (occurrence: None)
  Receive Date: 20101112
  Receipt Date: 20100914
  Transmission Date: 20110411
  Serious: No
  Sender: FDA-Public Use
  Company Number: A0881102A

PATIENT
  Sex: Female

DRUGS (3)
  1. TREXIMET [Suspect]
     Dosage: .5TAB AT NIGHT
     Route: 048
     Dates: start: 20080101
  2. FIORICET [Concomitant]
  3. NORTRIPTYLINE [Concomitant]

REACTIONS (7)
  - CONDITION AGGRAVATED [None]
  - DRUG ADMINISTRATION ERROR [None]
  - DRUG INEFFECTIVE [None]
  - FEELING ABNORMAL [None]
  - HANGOVER [None]
  - HEADACHE [None]
  - MALAISE [None]
